FAERS Safety Report 4854941-1 (Version None)
Quarter: 2005Q4

REPORT INFORMATION
  Report Type: 
  Country: None (occurrence: None)
  Receive Date: 20051213
  Receipt Date: 20051206
  Transmission Date: 20060501
  Serious: Yes (Other)
  Sender: FDA-Public Use
  Company Number: GBWYE417511FEB05

PATIENT
  Age: 35 Year
  Sex: Female

DRUGS (2)
  1. EFFEXOR XR [Suspect]
     Indication: ANXIETY
     Dosage: 75MG, ORAL
     Route: 048
     Dates: start: 20011001, end: 20050208
  2. EFFEXOR XR [Suspect]
     Indication: DEPRESSION
     Dosage: 75MG, ORAL
     Route: 048
     Dates: start: 20011001, end: 20050208

REACTIONS (3)
  - DRUG EXPOSURE DURING PREGNANCY [None]
  - PREGNANCY [None]
  - PREMATURE LABOUR [None]
